FAERS Safety Report 13738669 (Version 1)
Quarter: 2017Q3

REPORT INFORMATION
  Report Type: Spontaneous
  Country: US (occurrence: US)
  Receive Date: 20170710
  Receipt Date: 20170710
  Transmission Date: 20171127
  Serious: Yes (Other)
  Sender: FDA-Public Use
  Company Number: US-SAOL THERAPEUTICS-0700763568

PATIENT
  Age: 47 Year
  Sex: Female

DRUGS (10)
  1. PLAQUENIL [Suspect]
     Active Substance: HYDROXYCHLOROQUINE SULFATE
  2. LIORESAL [Suspect]
     Active Substance: BACLOFEN
     Dosage: 826.4 ?G, \DAY
     Route: 037
     Dates: start: 20141027
  3. NOVOLOG [Suspect]
     Active Substance: INSULIN ASPART
  4. LIORESAL [Suspect]
     Active Substance: BACLOFEN
     Indication: MUSCLE SPASTICITY
     Dosage: 962 ?G, \DAY
     Dates: start: 20141008, end: 20141024
  5. GABAPENTIN. [Suspect]
     Active Substance: GABAPENTIN
  6. LIORESAL [Suspect]
     Active Substance: BACLOFEN
     Dosage: 872.8 ?G, \DAY
     Route: 037
     Dates: start: 20141024, end: 20141027
  7. EVOXAC [Suspect]
     Active Substance: CEVIMELINE HYDROCHLORIDE
  8. LISINOPRIL. [Suspect]
     Active Substance: LISINOPRIL
  9. LEVOTHYROXINE. [Suspect]
     Active Substance: LEVOTHYROXINE
  10. SIMVASTATIN. [Suspect]
     Active Substance: SIMVASTATIN

REACTIONS (6)
  - Hyporeflexia [Recovered/Resolved]
  - Ataxia [Recovered/Resolved]
  - Somnolence [Recovered/Resolved]
  - Hypotonia [Recovered/Resolved]
  - Dysarthria [Recovered/Resolved]
  - Overdose [Recovered/Resolved]

NARRATIVE: CASE EVENT DATE: 20141024
